FAERS Safety Report 4362038-2 (Version None)
Quarter: 2004Q2

REPORT INFORMATION
  Report Type: 
  Country: None (occurrence: None)
  Receive Date: 20040521
  Receipt Date: 20040223
  Transmission Date: 20050107
  Serious: No
  Sender: FDA-Public Use
  Company Number: US-GLAXOSMITHKLINE-A0499456A

PATIENT
  Age: 31 Year
  Sex: Female

DRUGS (2)
  1. WELLBUTRIN XL [Suspect]
     Indication: DEPRESSION
     Dosage: 300MG PER DAY
     Route: 048
     Dates: start: 20040128, end: 20040220
  2. ORTHO-NOVUM 7/7/7-21 [Concomitant]

REACTIONS (5)
  - CRYING [None]
  - DIZZINESS [None]
  - NAUSEA [None]
  - SALIVARY HYPERSECRETION [None]
  - THROAT TIGHTNESS [None]
